FAERS Safety Report 21127805 (Version 1)
Quarter: 2022Q3

REPORT INFORMATION
  Report Type: Spontaneous
  Country: US (occurrence: US)
  Receive Date: 20220725
  Receipt Date: 20220725
  Transmission Date: 20221027
  Serious: No
  Sender: FDA-Public Use
  Company Number: US-ABBVIE-22K-163-4329541-00

PATIENT

DRUGS (2)
  1. SYNTHROID [Suspect]
     Active Substance: LEVOTHYROXINE SODIUM
     Indication: Product used for unknown indication
     Route: 048
  2. OCALIVA [Suspect]
     Active Substance: OBETICHOLIC ACID
     Indication: Product used for unknown indication
     Dosage: REDUCED TO 10 MILLIGRAMS.
     Route: 065

REACTIONS (8)
  - Weight increased [Unknown]
  - Muscle fatigue [Unknown]
  - Pruritus [Unknown]
  - Sleep disorder [Unknown]
  - Blood alkaline phosphatase increased [Unknown]
  - Fatigue [Unknown]
  - Drug titration error [Unknown]
  - Adverse event [Unknown]
